FAERS Safety Report 17554658 (Version 1)
Quarter: 2020Q1

REPORT INFORMATION
  Report Type: Spontaneous
  Country: DE (occurrence: DE)
  Receive Date: 20200318
  Receipt Date: 20200318
  Transmission Date: 20200409
  Serious: Yes (Hospitalization)
  Sender: FDA-Public Use
  Company Number: NVSC2020DE075612

PATIENT
  Age: 41 Year
  Sex: Male

DRUGS (6)
  1. ARTESUNATE [Suspect]
     Active Substance: ARTESUNATE
     Indication: MALARIA
     Dosage: 200 MG, QD
     Route: 042
  2. DOXYCYCLINE. [Suspect]
     Active Substance: DOXYCYCLINE
     Indication: MALARIA PROPHYLAXIS
     Dosage: UNK
     Route: 065
  3. ARTEMETHER + LUMEFANTRINE [Concomitant]
     Active Substance: ARTEMETHER\LUMEFANTRINE
     Indication: MALARIA
     Dosage: 6 DOSES, ARTEMETHER: 80 MG; LUMEFANTRINE: 480 MG
     Route: 065
  4. DOXYCYCLINE. [Suspect]
     Active Substance: DOXYCYCLINE
     Indication: MALARIA
  5. NORADRENALINE [Suspect]
     Active Substance: NOREPINEPHRINE
     Indication: RESPIRATORY FATIGUE
     Dosage: 11 MG, QH
     Route: 065
  6. CEFTRIAXONE. [Concomitant]
     Active Substance: CEFTRIAXONE
     Indication: PRODUCT USED FOR UNKNOWN INDICATION
     Dosage: UNK
     Route: 065

REACTIONS (3)
  - Haemolytic anaemia [Unknown]
  - Staphylococcal infection [Unknown]
  - Peripheral vascular disorder [Recovered/Resolved]
